FAERS Safety Report 7715659-0 (Version None)
Quarter: 2011Q3

REPORT INFORMATION
  Report Type: 
  Country: None (occurrence: None)
  Receive Date: 20110829
  Receipt Date: 20110824
  Transmission Date: 20111222
  Serious: Yes (Hospitalization)
  Sender: FDA-Public Use
  Company Number: GB-PFIZER INC-2011100724

PATIENT
  Age: 73 Year
  Sex: Male

DRUGS (4)
  1. PIPERACILLIN AND TAZOBACTAM [Concomitant]
     Indication: SEPSIS
     Dosage: UNK
     Route: 042
     Dates: start: 20091110, end: 20091127
  2. MEROPENEM [Concomitant]
     Indication: SEPSIS
     Dosage: UNK
     Route: 042
     Dates: start: 20091128, end: 20091212
  3. VANCOMYCIN [Concomitant]
     Indication: SEPSIS
     Dosage: UNK
     Route: 042
     Dates: start: 20091129, end: 20091210
  4. ANIDULAFUNGIN [Suspect]
     Indication: LIVER DISORDER
     Dosage: 100 MG, 1X/DAY
     Dates: start: 20091111, end: 20091130

REACTIONS (1)
  - FUNGAL INFECTION [None]
